FAERS Safety Report 24143677 (Version 1)
Quarter: 2024Q3

REPORT INFORMATION
  Report Type: Spontaneous
  Country: US (occurrence: US)
  Receive Date: 20240727
  Receipt Date: 20240727
  Transmission Date: 20241017
  Serious: Yes (Other)
  Sender: TEVA
  Company Number: US-TEVA-VS-3224125

PATIENT
  Age: 65 Year
  Sex: Male
  Weight: 95.25 kg

DRUGS (2)
  1. RASAGILINE [Suspect]
     Active Substance: RASAGILINE\RASAGILINE MESYLATE
     Indication: Parkinson^s disease
     Route: 065
  2. ELAVIL [Suspect]
     Active Substance: AMITRIPTYLINE HYDROCHLORIDE
     Indication: Back pain
     Route: 065

REACTIONS (5)
  - Drug interaction [Unknown]
  - Back pain [Unknown]
  - Neuralgia [Unknown]
  - Impaired quality of life [Unknown]
  - Contraindicated product prescribed [Unknown]
